FAERS Safety Report 10817993 (Version 1)
Quarter: 2015Q1

REPORT INFORMATION
  Report Type: Report from Study
  Country: BR (occurrence: BR)
  Receive Date: 20150218
  Receipt Date: 20150218
  Transmission Date: 20150721
  Serious: Yes (Hospitalization)
  Sender: FDA-Public Use
  Company Number: BR-ABBVIE-15K-020-1346077-00

PATIENT
  Sex: Female
  Weight: 58 kg

DRUGS (4)
  1. GLIFAGE [Concomitant]
     Active Substance: METFORMIN HYDROCHLORIDE
     Indication: DIABETES PROPHYLAXIS
     Route: 048
     Dates: start: 201501
  2. LOSARTAN POTASSIUM. [Concomitant]
     Active Substance: LOSARTAN POTASSIUM
     Indication: BLOOD PRESSURE ABNORMAL
     Dosage: AT 8 AM
     Route: 048
     Dates: start: 201402
  3. HYDROCHLOROTHIAZIDE. [Concomitant]
     Active Substance: HYDROCHLOROTHIAZIDE
     Indication: BLOOD PRESSURE ABNORMAL
     Dosage: AT 8 AM
     Route: 048
     Dates: start: 201402
  4. HUMIRA [Suspect]
     Active Substance: ADALIMUMAB
     Indication: RHEUMATOID ARTHRITIS
     Route: 058
     Dates: start: 20110401, end: 201411

REACTIONS (20)
  - Anaemia [Not Recovered/Not Resolved]
  - Hepatic steatosis [Not Recovered/Not Resolved]
  - Psychiatric symptom [Recovered/Resolved]
  - Haematochezia [Recovered/Resolved]
  - Pyrexia [Recovered/Resolved]
  - Gastritis [Unknown]
  - Abdominal pain upper [Recovering/Resolving]
  - Immunodeficiency [Unknown]
  - Gastrooesophageal reflux disease [Not Recovered/Not Resolved]
  - Malaise [Recovering/Resolving]
  - Skin bacterial infection [Recovering/Resolving]
  - Injection site infection [Recovering/Resolving]
  - Injection site pain [Recovering/Resolving]
  - Headache [Recovered/Resolved]
  - Haemorrhagic ovarian cyst [Recovering/Resolving]
  - Abdominal distension [Recovering/Resolving]
  - Hookworm infection [Not Recovered/Not Resolved]
  - Uterine leiomyoma [Not Recovered/Not Resolved]
  - Weight decreased [Unknown]
  - Gastric haemorrhage [Unknown]

NARRATIVE: CASE EVENT DATE: 2012
